FAERS Safety Report 16261929 (Version 2)
Quarter: 2019Q2

REPORT INFORMATION
  Report Type: Report from Study
  Country: DE (occurrence: DE)
  Receive Date: 20190501
  Receipt Date: 20190509
  Transmission Date: 20190711
  Serious: Yes (Hospitalization)
  Sender: FDA-Public Use
  Company Number: DE-VERTEX PHARMACEUTICALS-2019-003698

PATIENT
  Age: 30 Year
  Sex: Male
  Weight: 103 kg

DRUGS (16)
  1. AZITHROMYCIN ANHYDROUS. [Concomitant]
     Active Substance: AZITHROMYCIN ANHYDROUS
     Dosage: 500 MG, T/W
     Route: 048
     Dates: start: 2017
  2. URSOFALK [Concomitant]
     Active Substance: URSODIOL
     Indication: CYSTIC FIBROSIS LUNG
     Dosage: 250 MG, QD
     Route: 048
     Dates: start: 1995
  3. SALBUTAMOL [Concomitant]
     Active Substance: ALBUTEROL
     Indication: CYSTIC FIBROSIS LUNG
     Dosage: 2.5/2.5MG/ML, BID
     Route: 055
     Dates: start: 1995
  4. CREON [Concomitant]
     Active Substance: PANCRELIPASE AMYLASE\PANCRELIPASE LIPASE\PANCRELIPASE PROTEASE
     Indication: PANCREATIC FAILURE
     Dosage: 40000 INTERNATIONAL UNIT, QD
     Route: 048
     Dates: start: 1989
  5. L-THYROXIN                         /00068001/ [Concomitant]
     Active Substance: LEVOTHYROXINE
     Indication: HYPOTHYROIDISM
     Dosage: 50 MICROGRAM, QD
     Route: 048
     Dates: start: 2016
  6. TOBRAMYCIN. [Concomitant]
     Active Substance: TOBRAMYCIN
     Dosage: 28 MG, QD
     Route: 055
     Dates: start: 20190304, end: 20190409
  7. COLISTIN [Concomitant]
     Active Substance: COLISTIN
     Dosage: 1662500 INTERNATIONAL UNIT, QD
     Route: 055
     Dates: start: 20190410, end: 20190419
  8. MUCOCLEAR                          /00075401/ [Concomitant]
     Indication: CYSTIC FIBROSIS LUNG
     Dosage: 4 MILLILITER, QD
     Route: 048
     Dates: start: 2017
  9. TIOTROPIUM [Concomitant]
     Active Substance: TIOTROPIUM
     Indication: CYSTIC FIBROSIS LUNG
     Dosage: 2.5 MICROGRAM, QD
     Route: 055
     Dates: start: 2016
  10. ADEK [Concomitant]
     Indication: PANCREATIC FAILURE
     Dosage: UNK, QD
     Route: 048
     Dates: start: 2016
  11. ACETYLCYSTEIN [Concomitant]
     Active Substance: ACETYLCYSTEINE
     Indication: CYSTIC FIBROSIS LUNG
     Dosage: 600 MG, QD
     Route: 048
     Dates: start: 1995
  12. OLODATEROL [Concomitant]
     Active Substance: OLODATEROL
     Indication: CYSTIC FIBROSIS LUNG
     Dosage: 2.5 MICROGRAM, QD
     Route: 055
     Dates: start: 2016
  13. VX-445 [Suspect]
     Active Substance: INVESTIGATIONAL PRODUCT
     Indication: CYSTIC FIBROSIS
     Dosage: UNK
     Route: 048
     Dates: start: 20190411, end: 20190420
  14. VX-661/VX-770 [Suspect]
     Active Substance: IVACAFTOR\TEZACAFTOR
     Indication: CYSTIC FIBROSIS
     Dosage: UNK
     Route: 048
     Dates: start: 20190411, end: 20190420
  15. PULMOZYME [Concomitant]
     Active Substance: DORNASE ALFA
     Indication: CYSTIC FIBROSIS LUNG
     Dosage: 2500 IU/2.5 ML, QD
     Route: 055
     Dates: start: 1996
  16. ESOMEPRAZOL                        /01479301/ [Concomitant]
     Active Substance: ESOMEPRAZOLE
     Dosage: 40 MG, QD
     Route: 048
     Dates: start: 2013

REACTIONS (2)
  - Rash [Recovered/Resolved]
  - Infective pulmonary exacerbation of cystic fibrosis [Recovered/Resolved]

NARRATIVE: CASE EVENT DATE: 20190421
